FAERS Safety Report 17871587 (Version 1)
Quarter: 2020Q2

REPORT INFORMATION
  Report Type: Report from Study
  Country: GB (occurrence: CA)
  Receive Date: 20200608
  Receipt Date: 20200608
  Transmission Date: 20200714
  Serious: Yes (Other)
  Sender: FDA-Public Use
  Company Number: CA-SAMSUNG BIOEPIS-SB-2020-19089

PATIENT
  Sex: Female

DRUGS (3)
  1. BRENZYS [Suspect]
     Active Substance: ETANERCEPT
     Route: 058
  2. BRENZYS [Suspect]
     Active Substance: ETANERCEPT
     Indication: RHEUMATOID ARTHRITIS
     Route: 058
     Dates: start: 20190803
  3. PLAQUENIL [Concomitant]
     Active Substance: HYDROXYCHLOROQUINE SULFATE
     Indication: PRODUCT USED FOR UNKNOWN INDICATION
     Dosage: UNKNOWN
     Route: 065

REACTIONS (5)
  - Swelling face [Recovered/Resolved]
  - Swollen tongue [Recovered/Resolved]
  - Hypersensitivity [Recovered/Resolved]
  - Oropharyngeal blistering [Recovered/Resolved]
  - Pruritus [Recovered/Resolved]
